FAERS Safety Report 25104854 (Version 1)
Quarter: 2025Q1

REPORT INFORMATION
  Report Type: Spontaneous
  Country: US (occurrence: US)
  Receive Date: 20250321
  Receipt Date: 20250321
  Transmission Date: 20250408
  Serious: No
  Sender: Day One Biopharmaceuticals
  Company Number: US-Day One Biopharmaceuticals Inc.-2025US000357

PATIENT

DRUGS (2)
  1. OJEMDA [Suspect]
     Active Substance: TOVORAFENIB
     Indication: Neoplasm
     Dosage: 400 MG, WEEKLY
     Dates: start: 202502
  2. OJEMDA [Suspect]
     Active Substance: TOVORAFENIB
     Route: 065
     Dates: start: 202410

REACTIONS (3)
  - Weight decreased [Unknown]
  - Swelling face [Unknown]
  - Fatigue [Unknown]
